FAERS Safety Report 9508368 (Version 1)
Quarter: 2013Q3

REPORT INFORMATION
  Report Type: Spontaneous
  Country: DK (occurrence: DK)
  Receive Date: 20130909
  Receipt Date: 20130909
  Transmission Date: 20140515
  Serious: Yes (Hospitalization)
  Sender: FDA-Public Use
  Company Number: DK-PFIZER INC-2013257742

PATIENT
  Age: 1 Hour
  Sex: Male
  Weight: .5 kg

DRUGS (3)
  1. ZOLOFT [Suspect]
     Indication: ANTIDEPRESSANT THERAPY
     Dosage: 50 MG, DAILY
     Route: 064
     Dates: start: 20120927, end: 20130225
  2. SEROQUEL PROLONG [Suspect]
     Indication: PSYCHOTIC DISORDER
     Dosage: 400 MG, DAILY
     Route: 064
     Dates: start: 20130117, end: 20130208
  3. SEROQUEL PROLONG [Suspect]
     Dosage: 200 MG, 1X/DAY
     Route: 064
     Dates: start: 20130209, end: 20130309

REACTIONS (3)
  - Maternal exposure during pregnancy [Unknown]
  - Premature baby [Unknown]
  - Malaise [Unknown]
